FAERS Safety Report 7938116-5 (Version None)
Quarter: 2011Q4

REPORT INFORMATION
  Report Type: 
  Country: None (occurrence: None)
  Receive Date: 20111123
  Receipt Date: 20110823
  Transmission Date: 20120403
  Serious: No
  Sender: FDA-Public Use
  Company Number: US-BRISTOL-MYERS SQUIBB COMPANY-15993769

PATIENT
  Age: 77 Year
  Sex: Female

DRUGS (4)
  1. ONGLYZA [Suspect]
  2. ENALAPRIL MALEATE [Concomitant]
  3. METFORMIN [Concomitant]
  4. GLYBURIDE [Concomitant]

REACTIONS (2)
  - DIABETES MELLITUS INADEQUATE CONTROL [None]
  - RENAL PAIN [None]
